FAERS Safety Report 17863802 (Version 2)
Quarter: 2020Q3

REPORT INFORMATION
  Report Type: Spontaneous
  Country: SK (occurrence: SK)
  Receive Date: 20200605
  Receipt Date: 20200703
  Transmission Date: 20201103
  Serious: Yes (Life-Threatening)
  Sender: FDA-Public Use
  Company Number: SK-ROCHE-2613687

PATIENT
  Age: 60 Year
  Sex: Male

DRUGS (5)
  1. CISPLATIN. [Suspect]
     Active Substance: CISPLATIN
     Indication: PRODUCT USED FOR UNKNOWN INDICATION
     Route: 065
  2. RITUXIMAB. [Suspect]
     Active Substance: RITUXIMAB
     Indication: PRODUCT USED FOR UNKNOWN INDICATION
     Route: 065
  3. DEXAMETHASONE. [Suspect]
     Active Substance: DEXAMETHASONE
     Indication: PRODUCT USED FOR UNKNOWN INDICATION
     Route: 065
  4. CYTARABINE. [Suspect]
     Active Substance: CYTARABINE
     Indication: CHEMOTHERAPY
     Route: 065
  5. G?CSF [Suspect]
     Active Substance: GRANULOCYTE COLONY-STIMULATING FACTOR NOS
     Indication: PRODUCT USED FOR UNKNOWN INDICATION
     Route: 065

REACTIONS (6)
  - Febrile neutropenia [Recovered/Resolved]
  - Immune thrombocytopenia [Recovered/Resolved]
  - Haematotoxicity [Recovered/Resolved]
  - Neutropenia [Recovered/Resolved]
  - Anaemia [Recovered/Resolved]
  - Abscess limb [Recovered/Resolved]
